FAERS Safety Report 18661660 (Version 1)
Quarter: 2020Q4

REPORT INFORMATION
  Report Type: Spontaneous
  Country: AT (occurrence: AT)
  Receive Date: 20201224
  Receipt Date: 20201224
  Transmission Date: 20210114
  Serious: Yes (Hospitalization, Other)
  Sender: FDA-Public Use
  Company Number: AT-PFIZER INC-2020499864

PATIENT
  Age: 38 Year
  Sex: Female

DRUGS (15)
  1. TEMESTA (LORAZEPAM) [Suspect]
     Active Substance: LORAZEPAM
     Dosage: 3.75 MG
     Dates: start: 20200618, end: 20200624
  2. RISPERDAL [Suspect]
     Active Substance: RISPERIDONE
     Dosage: 3 MG
     Dates: start: 20200608, end: 20200608
  3. RISPERDAL [Suspect]
     Active Substance: RISPERIDONE
     Dosage: 6 MG
     Dates: start: 20200616, end: 20200628
  4. TEMESTA (LORAZEPAM) [Suspect]
     Active Substance: LORAZEPAM
     Dosage: 5 MG
     Dates: start: 20200608, end: 20200617
  5. TEMESTA (LORAZEPAM) [Suspect]
     Active Substance: LORAZEPAM
     Dosage: 1.5 MG
     Dates: start: 20200703, end: 20200706
  6. QUILONORM [LITHIUM CARBONATE] [Suspect]
     Active Substance: LITHIUM CARBONATE
     Dosage: 225 MG
     Route: 065
     Dates: start: 20200619, end: 20200621
  7. QUILONORM [LITHIUM CARBONATE] [Suspect]
     Active Substance: LITHIUM CARBONATE
     Dosage: 450 MG
     Route: 065
     Dates: start: 20200622, end: 20200622
  8. RISPERDAL [Suspect]
     Active Substance: RISPERIDONE
     Dosage: 4.5 MG
     Dates: start: 20200629, end: 20200706
  9. TEMESTA (LORAZEPAM) [Suspect]
     Active Substance: LORAZEPAM
     Dosage: 3.75 MG
     Dates: start: 20200625, end: 20200629
  10. TEMESTA (LORAZEPAM) [Suspect]
     Active Substance: LORAZEPAM
     Dosage: 2.5 MG
     Dates: start: 20200701, end: 20200702
  11. RISPERDAL [Suspect]
     Active Substance: RISPERIDONE
     Dosage: 4 MG
     Dates: start: 20200609, end: 20200614
  12. TEMESTA (LORAZEPAM) [Suspect]
     Active Substance: LORAZEPAM
     Dosage: 3 MG
     Dates: start: 20200630, end: 20200630
  13. RISPERDAL [Suspect]
     Active Substance: RISPERIDONE
     Indication: SCHIZOAFFECTIVE DISORDER
     Dosage: 5 MG
     Dates: start: 20200615, end: 20200615
  14. QUILONORM [LITHIUM CARBONATE] [Suspect]
     Active Substance: LITHIUM CARBONATE
     Dosage: 675 MG
     Route: 065
     Dates: start: 20200623, end: 20200706
  15. CANDESARTAN. [Suspect]
     Active Substance: CANDESARTAN
     Dosage: 16 MG
     Route: 065

REACTIONS (1)
  - Galactorrhoea [Recovered/Resolved]

NARRATIVE: CASE EVENT DATE: 20200628
